FAERS Safety Report 5933989-X (Version None)
Quarter: 2008Q4

REPORT INFORMATION
  Report Type: 
  Country: None (occurrence: None)
  Receive Date: 20081029
  Receipt Date: 20081020
  Transmission Date: 20090506
  Serious: Yes (Hospitalization)
  Sender: FDA-Public Use
  Company Number: BR-ABBOTT-08P-020-0483253-00

PATIENT
  Age: 19 Year
  Sex: Male
  Weight: 57 kg

DRUGS (1)
  1. DEPAKENE [Suspect]
     Indication: CEREBRAL DISORDER
     Route: 048
     Dates: start: 20050101, end: 20080920

REACTIONS (2)
  - CONVULSION [None]
  - PETIT MAL EPILEPSY [None]
